FAERS Safety Report 5106191-1 (Version None)
Quarter: 2006Q3

REPORT INFORMATION
  Report Type: 
  Country: None (occurrence: None)
  Receive Date: 20060918
  Receipt Date: 20060908
  Transmission Date: 20061208
  Serious: Yes (Hospitalization, Other)
  Sender: FDA-Public Use
  Company Number: US-BAYER-200613838BCC

PATIENT
  Age: 71 Year
  Sex: Male
  Weight: 75 kg

DRUGS (4)
  1. ASPIRIN [Suspect]
     Indication: ANALGESIC EFFECT
     Route: 048
  2. ASPIRIN [Suspect]
     Route: 048
  3. ASPIRIN [Suspect]
     Route: 048
  4. HIGH BLOOD PRESSURE MEDICATION [Concomitant]

REACTIONS (3)
  - ARTERIAL OCCLUSIVE DISEASE [None]
  - CHEST PAIN [None]
  - MYOCARDIAL INFARCTION [None]
